FAERS Safety Report 14751949 (Version 1)
Quarter: 2018Q2

REPORT INFORMATION
  Report Type: Spontaneous
  Country: IT (occurrence: IT)
  Receive Date: 20180412
  Receipt Date: 20180412
  Transmission Date: 20180711
  Serious: Yes (Hospitalization)
  Sender: FDA-Public Use
  Company Number: IT-AUROBINDO-AUR-APL-2018-020029

PATIENT
  Age: 77 Year
  Sex: Female

DRUGS (1)
  1. CITALOPRAM [Suspect]
     Active Substance: CITALOPRAM HYDROBROMIDE
     Indication: PRODUCT USED FOR UNKNOWN INDICATION
     Dosage: 26 GTT, IN TOTAL
     Route: 048
     Dates: start: 20180122, end: 20180122

REACTIONS (3)
  - Medication error [Recovering/Resolving]
  - Tachycardia [Recovering/Resolving]
  - Adverse event [Recovering/Resolving]

NARRATIVE: CASE EVENT DATE: 20180122
